FAERS Safety Report 14229592 (Version 1)
Quarter: 2017Q4

REPORT INFORMATION
  Report Type: Spontaneous
  Country: CA (occurrence: CA)
  Receive Date: 20171128
  Receipt Date: 20171128
  Transmission Date: 20180321
  Serious: Yes (Other)
  Sender: FDA-Public Use
  Company Number: CA-ROCHE-2026223

PATIENT
  Sex: Female

DRUGS (11)
  1. ORENCIA [Suspect]
     Active Substance: ABATACEPT
     Indication: PRODUCT USED FOR UNKNOWN INDICATION
     Route: 065
  2. LEFLUNOMIDE. [Concomitant]
     Active Substance: LEFLUNOMIDE
  3. HYDROXYCHLOROQUINE [Concomitant]
     Active Substance: HYDROXYCHLOROQUINE
  4. XELJANZ [Concomitant]
     Active Substance: TOFACITINIB CITRATE
  5. ACTEMRA [Suspect]
     Active Substance: TOCILIZUMAB
     Indication: PRODUCT USED FOR UNKNOWN INDICATION
     Route: 065
     Dates: end: 201611
  6. INFLIXIMAB [Concomitant]
     Active Substance: INFLIXIMAB
  7. PLAQUENIL [Concomitant]
     Active Substance: HYDROXYCHLOROQUINE SULFATE
  8. PREDNISONE. [Concomitant]
     Active Substance: PREDNISONE
  9. ENBREL [Suspect]
     Active Substance: ETANERCEPT
     Indication: RHEUMATOID ARTHRITIS
     Route: 065
  10. METHOTREXATE. [Suspect]
     Active Substance: METHOTREXATE
     Indication: RHEUMATOID ARTHRITIS
     Route: 065
     Dates: end: 2012
  11. HUMIRA [Suspect]
     Active Substance: ADALIMUMAB
     Indication: PRODUCT USED FOR UNKNOWN INDICATION
     Route: 058

REACTIONS (8)
  - Synovitis [Unknown]
  - Dermatitis allergic [Unknown]
  - C-reactive protein abnormal [Unknown]
  - Drug intolerance [Unknown]
  - Drug effect decreased [Unknown]
  - Intervertebral disc protrusion [Unknown]
  - Drug hypersensitivity [Unknown]
  - Pruritus allergic [Unknown]
